FAERS Safety Report 15772340 (Version 1)
Quarter: 2018Q4

REPORT INFORMATION
  Report Type: Spontaneous
  Country: US (occurrence: US)
  Receive Date: 20181228
  Receipt Date: 20181228
  Transmission Date: 20190205
  Serious: Yes (Other)
  Sender: FDA-Public Use
  Company Number: US-COOPERSURGICAL, INC.-US-2018CPS034062

PATIENT

DRUGS (1)
  1. PARAGARD T 380A [Suspect]
     Active Substance: COPPER
     Indication: CONTRACEPTION
     Dosage: UNK
     Route: 015
     Dates: start: 20170119, end: 20181108

REACTIONS (10)
  - Abdominal adhesions [Unknown]
  - Device dislocation [Recovered/Resolved]
  - Device issue [Recovered/Resolved]
  - Hypomenorrhoea [Recovered/Resolved]
  - Vaginal discharge [Recovered/Resolved]
  - Hiatus hernia [Unknown]
  - Embedded device [Recovered/Resolved]
  - Umbilical hernia [Unknown]
  - Vaginal haemorrhage [Not Recovered/Not Resolved]
  - Abdominal pain [Recovered/Resolved]

NARRATIVE: CASE EVENT DATE: 20181003
